FAERS Safety Report 8779395 (Version 3)
Quarter: 2014Q2

REPORT INFORMATION
  Report Type: Spontaneous
  Country: US (occurrence: US)
  Receive Date: 20120912
  Receipt Date: 20131018
  Transmission Date: 20141212
  Serious: Yes (Hospitalization)
  Sender: FDA-Public Use
  Company Number: US-PFIZER INC-001-0073-960052

PATIENT
  Age: 38 Year
  Sex: Female
  Weight: 43.08 kg

DRUGS (5)
  1. DILANTIN [Suspect]
     Indication: COMPLEX PARTIAL SEIZURES
     Dosage: 300 MG, 3X/DAY
  2. DILANTIN [Suspect]
     Indication: CONVULSION
     Dosage: 200 MG, 2X/DAY
     Route: 048
  3. TEGRETOL [Concomitant]
  4. LIPITOR [Concomitant]
     Indication: BLOOD CHOLESTEROL INCREASED
     Dosage: 20 MG, DAILY
  5. ADVAIR [Concomitant]
     Indication: DYSPNOEA
     Dosage: UNK,2X/DAY

REACTIONS (12)
  - Head injury [Recovered/Resolved]
  - Visual impairment [Recovered/Resolved]
  - Neoplasm recurrence [Recovered/Resolved]
  - Toxicity to various agents [Recovered/Resolved]
  - Fall [Recovered/Resolved]
  - Product quality issue [Recovered/Resolved]
  - Dyspepsia [Recovered/Resolved]
  - Dizziness [Recovered/Resolved]
  - Balance disorder [Recovered/Resolved]
  - Dizziness [Recovered/Resolved]
  - Feeling drunk [Recovered/Resolved]
  - Pain [Recovered/Resolved]
